FAERS Safety Report 17946130 (Version 1)
Quarter: 2020Q2

REPORT INFORMATION
  Report Type: Spontaneous
  Country: US (occurrence: US)
  Receive Date: 20200625
  Receipt Date: 20200625
  Transmission Date: 20200714
  Serious: No
  Sender: FDA-Public Use
  Company Number: US-SPROUT PHARMACEUTICALS, INC.-2020SP000066

PATIENT
  Age: 31 Year
  Sex: Female
  Weight: 60.84 kg

DRUGS (4)
  1. LEVOTHYROXINE. [Concomitant]
     Active Substance: LEVOTHYROXINE
     Indication: HYPOTHYROIDISM
  2. CYTOMEL [Concomitant]
     Active Substance: LIOTHYRONINE SODIUM
     Indication: HYPOTHYROIDISM
  3. METFORMIN [Concomitant]
     Active Substance: METFORMIN HYDROCHLORIDE
     Indication: POLYCYSTIC OVARIES
     Route: 065
  4. ADDYI [Suspect]
     Active Substance: FLIBANSERIN
     Indication: LIBIDO DECREASED
     Route: 048
     Dates: start: 202005, end: 202005

REACTIONS (11)
  - Memory impairment [Recovered/Resolved]
  - Confusional state [Recovered/Resolved]
  - Impaired driving ability [Recovered/Resolved]
  - Dizziness [Recovered/Resolved]
  - Hypotension [Recovered/Resolved]
  - Feeling drunk [Recovered/Resolved]
  - Disturbance in attention [Recovered/Resolved]
  - Vision blurred [Recovered/Resolved]
  - Somnolence [Recovered/Resolved]
  - Headache [Recovered/Resolved]
  - Gait disturbance [Recovered/Resolved]

NARRATIVE: CASE EVENT DATE: 202005
